FAERS Safety Report 4966044-6 (Version None)
Quarter: 2006Q2

REPORT INFORMATION
  Report Type: 
  Country: None (occurrence: None)
  Receive Date: 20060407
  Receipt Date: 20060328
  Transmission Date: 20061013
  Serious: Yes (Other)
  Sender: FDA-Public Use
  Company Number: US-GLAXOSMITHKLINE-B0419421A

PATIENT

DRUGS (2)
  1. LAMIVUDINE + ZIDOVUDINE [Suspect]
     Indication: HIV INFECTION
     Dosage: 2TAB PER DAY
  2. LOPINAVIR + RITONAVIR [Suspect]
     Indication: HIV INFECTION
     Dosage: 6CAP PER DAY

REACTIONS (6)
  - CARDIAC DISORDER [None]
  - CONGENITAL GASTRIC ANOMALY [None]
  - DRUG EXPOSURE DURING PREGNANCY [None]
  - OESOPHAGEAL ATRESIA [None]
  - TRISOMY 21 [None]
  - VENTRICULAR SEPTAL DEFECT [None]
